FAERS Safety Report 23447591 (Version 1)
Quarter: 2024Q1

REPORT INFORMATION
  Report Type: Spontaneous
  Country: US (occurrence: US)
  Receive Date: 20240126
  Receipt Date: 20240126
  Transmission Date: 20240410
  Serious: Yes (Other)
  Sender: FDA-Public Use
  Company Number: US-AMGEN-USASP2024011871

PATIENT
  Age: 54 Year
  Sex: Male

DRUGS (5)
  1. BEVACIZUMAB [Suspect]
     Active Substance: BEVACIZUMAB
     Indication: Astrocytoma malignant
     Dosage: 7.5 MILLIGRAM/KILOGRAM, Q3WK (6 CYCLES)
     Route: 065
  2. PEMETREXED [Suspect]
     Active Substance: PEMETREXED
     Indication: Astrocytoma malignant
     Dosage: 500 MILLIGRAM/SQ. METER, Q3WK (6 CYCLES)
     Route: 065
  3. CANDESARTAN [Suspect]
     Active Substance: CANDESARTAN
     Indication: Astrocytoma malignant
     Dosage: 8 MILLIGRAM, BID (6 CYCLES)
     Route: 048
  4. DEXAMETHASONE [Concomitant]
     Active Substance: DEXAMETHASONE
     Indication: Brain oedema
     Dosage: 2-4 MILLIGRAM, QD
  5. DEXAMETHASONE [Concomitant]
     Active Substance: DEXAMETHASONE
     Dosage: DOSE TAPERED

REACTIONS (2)
  - Astrocytoma malignant [Unknown]
  - Off label use [Unknown]
